FAERS Safety Report 5239957-8 (Version None)
Quarter: 2007Q1

REPORT INFORMATION
  Report Type: 
  Country: None (occurrence: None)
  Receive Date: 20070216
  Receipt Date: 20070207
  Transmission Date: 20070707
  Serious: Yes (Hospitalization, Disabling, Other)
  Sender: FDA-Public Use
  Company Number: DE-PFIZER INC-2006111323

PATIENT
  Sex: Male
  Weight: 82 kg

DRUGS (4)
  1. ATORVASTATIN CALCIUM [Suspect]
     Indication: HYPERLIPIDAEMIA
     Dosage: DAILY DOSE:10MG
     Route: 048
     Dates: start: 19980101, end: 20060925
  2. LEVOTHYROXINE SODIUM [Concomitant]
     Indication: HYPOTHYROIDISM
     Route: 048
  3. BISOPROLOL FUMARATE [Concomitant]
     Route: 048
  4. SIFROL [Concomitant]
     Indication: RESTLESS LEGS SYNDROME
     Route: 048

REACTIONS (5)
  - CORONARY ARTERY DISEASE [None]
  - HYPOTHYROIDISM [None]
  - POLYNEUROPATHY [None]
  - RESTLESS LEGS SYNDROME [None]
  - SPINAL COLUMN STENOSIS [None]
